FAERS Safety Report 23245893 (Version 13)
Quarter: 2024Q4

REPORT INFORMATION
  Report Type: Report from Study
  Country: BR (occurrence: BR)
  Receive Date: 20231130
  Receipt Date: 20241021
  Transmission Date: 20250115
  Serious: Yes (Other)
  Sender: NOVARTIS
  Company Number: BR-002147023-NVSC2023BR175357

PATIENT
  Sex: Female

DRUGS (15)
  1. KISQALI [Suspect]
     Active Substance: RIBOCICLIB
     Indication: Breast cancer metastatic
     Dosage: 3 DOSAGE FORM, QD AFTER BREAKFAST
     Route: 065
     Dates: start: 202304
  2. KISQALI [Suspect]
     Active Substance: RIBOCICLIB
     Indication: Metastases to bone
     Dosage: UNK
     Route: 065
     Dates: start: 20240109
  3. KISQALI [Suspect]
     Active Substance: RIBOCICLIB
     Dosage: UNK
     Route: 065
     Dates: start: 20240625
  4. KISQALI [Suspect]
     Active Substance: RIBOCICLIB
     Dosage: UNK
     Route: 065
  5. KISQALI [Suspect]
     Active Substance: RIBOCICLIB
     Dosage: UNK
     Route: 065
  6. KISQALI [Suspect]
     Active Substance: RIBOCICLIB
     Dosage: UNK
     Route: 065
  7. KISQALI [Suspect]
     Active Substance: RIBOCICLIB
     Dosage: UNK
     Route: 065
  8. ZOMETA [Suspect]
     Active Substance: ZOLEDRONIC ACID
     Indication: Breast cancer metastatic
     Dosage: UNK, Q3MO
     Route: 065
     Dates: start: 202304
  9. ZOMETA [Suspect]
     Active Substance: ZOLEDRONIC ACID
     Indication: Metastases to bone
  10. FASLODEX [Suspect]
     Active Substance: FULVESTRANT
     Indication: Product used for unknown indication
     Dosage: 2 DOSAGE FORM, QMO
     Route: 030
     Dates: start: 202304
  11. FASLODEX [Suspect]
     Active Substance: FULVESTRANT
     Dosage: 2 DOSAGE FORM (2 INJECTIONS OF 5, APPLYING IT EVERY 22 DAYS)
     Route: 065
     Dates: start: 20240708
  12. ALPRAZOLAM [Concomitant]
     Active Substance: ALPRAZOLAM
     Indication: Sleep disorder
     Dosage: 1 DOSAGE FORM, QD
     Route: 065
     Dates: start: 2016
  13. ALPRAZOLAM [Concomitant]
     Active Substance: ALPRAZOLAM
     Dosage: 0.5 DOSAGE FORM
     Route: 048
     Dates: start: 202304, end: 202307
  14. ALPRAZOLAM [Concomitant]
     Active Substance: ALPRAZOLAM
     Dosage: 2 MG
     Route: 065
  15. ATENOLOL [Concomitant]
     Active Substance: ATENOLOL
     Indication: Hypertension
     Dosage: 1 DOSAGE FORM, QD
     Route: 048
     Dates: start: 2020

REACTIONS (37)
  - Pain in extremity [Recovered/Resolved]
  - Pain in extremity [Recovered/Resolved]
  - Hypoaesthesia [Recovered/Resolved]
  - Alopecia [Recovered/Resolved]
  - Alopecia [Recovered/Resolved]
  - Breast cancer metastatic [Recovering/Resolving]
  - Malignant neoplasm progression [Recovering/Resolving]
  - Nervousness [Recovered/Resolved]
  - Trichorrhexis [Recovered/Resolved]
  - Retracted nipple [Recovered/Resolved]
  - Madarosis [Not Recovered/Not Resolved]
  - Burning sensation [Recovered/Resolved]
  - Balance disorder [Recovering/Resolving]
  - Muscle spasms [Recovering/Resolving]
  - Somnolence [Recovered/Resolved]
  - Dysgeusia [Recovered/Resolved]
  - Pain [Recovered/Resolved]
  - Fatigue [Recovered/Resolved]
  - Dizziness [Recovered/Resolved]
  - Constipation [Recovered/Resolved]
  - Dizziness [Recovered/Resolved]
  - Diarrhoea [Recovered/Resolved]
  - Constipation [Recovered/Resolved]
  - Decreased appetite [Recovered/Resolved]
  - Burning sensation [Not Recovered/Not Resolved]
  - Dry skin [Not Recovered/Not Resolved]
  - Dizziness [Recovered/Resolved]
  - Nipple pain [Recovered/Resolved]
  - Sensitive skin [Unknown]
  - Fatigue [Recovered/Resolved]
  - Breast pain [Recovering/Resolving]
  - Confusional state [Recovering/Resolving]
  - Memory impairment [Recovering/Resolving]
  - Nipple pain [Recovered/Resolved]
  - Fear [Recovered/Resolved]
  - Anxiety disorder [Unknown]
  - Crying [Recovered/Resolved]

NARRATIVE: CASE EVENT DATE: 20230101
